FAERS Safety Report 7206360-0 (Version None)
Quarter: 2011Q1

REPORT INFORMATION
  Report Type: 
  Country: None (occurrence: None)
  Receive Date: 20110103
  Receipt Date: 20110103
  Transmission Date: 20110831
  Serious: Yes (Hospitalization)
  Sender: FDA-Public Use
  Company Number: PHHO2008US02916

PATIENT
  Sex: Male
  Weight: 173 kg

DRUGS (2)
  1. SANDOSTATIN LAR [Suspect]
     Indication: CARCINOID TUMOUR
     Dosage: DOUBLE BLIND
     Route: 048
     Dates: start: 20070905
  2. AFINITOR [Suspect]
     Indication: CARCINOID TUMOUR
     Dosage: 10 MG, QD
     Route: 048
     Dates: start: 20070905, end: 20080319

REACTIONS (10)
  - LUNG INFILTRATION [None]
  - SPUTUM DISCOLOURED [None]
  - PNEUMONITIS [None]
  - MUSCULOSKELETAL PAIN [None]
  - COUGH [None]
  - MYOCARDIAL INFARCTION [None]
  - CHEST PAIN [None]
  - DIASTOLIC DYSFUNCTION [None]
  - BODY TEMPERATURE INCREASED [None]
  - TROPONIN INCREASED [None]
